FAERS Safety Report 4758048-3 (Version None)
Quarter: 2005Q3

REPORT INFORMATION
  Report Type: 
  Country: None (occurrence: None)
  Receive Date: 20050830
  Receipt Date: 20050815
  Transmission Date: 20060218
  Serious: Yes (Hospitalization)
  Sender: FDA-Public Use
  Company Number: 2005BI013497

PATIENT
  Age: 72 Year
  Sex: Male
  Weight: 81.6475 kg

DRUGS (4)
  1. AVONEX [Suspect]
     Indication: MULTIPLE SCLEROSIS
     Dosage: 30 UG; QW; IM
     Route: 030
     Dates: start: 20000901
  2. AVONEX [Suspect]
     Indication: MULTIPLE SCLEROSIS
     Dosage: 30 UG; QW; IM
     Route: 030
  3. ASPIRIN [Concomitant]
  4. NON-STEROIDAL DRUGS [Concomitant]

REACTIONS (6)
  - ASTHENIA [None]
  - MOBILITY DECREASED [None]
  - PERFORATED ULCER [None]
  - SEPSIS [None]
  - STAPHYLOCOCCAL BACTERAEMIA [None]
  - ULCER HAEMORRHAGE [None]
